FAERS Safety Report 6393167-X (Version None)
Quarter: 2009Q4

REPORT INFORMATION
  Report Type: 
  Country: None (occurrence: None)
  Receive Date: 20091008
  Receipt Date: 20091001
  Transmission Date: 20100525
  Serious: No
  Sender: FDA-Public Use
  Company Number: US-B.I. PHARMACEUTICALS,INC./RIDGEFIELD-2009-BP-11524BP

PATIENT
  Sex: Female

DRUGS (14)
  1. SPIRIVA [Suspect]
     Indication: CHRONIC OBSTRUCTIVE PULMONARY DISEASE
     Dosage: 18 MCG
     Route: 055
     Dates: start: 20080101
  2. SYNTHROID [Concomitant]
     Indication: HYPOTHYROIDISM
  3. FUROSEMIDE [Concomitant]
     Indication: CARDIAC FAILURE CONGESTIVE
  4. DIAVAN [Concomitant]
     Indication: HYPERTENSION
  5. NORVASC [Concomitant]
     Indication: HYPERTENSION
  6. LOPRESSOR [Concomitant]
     Indication: HYPERTENSION
  7. HYDRALAZINE HCL [Concomitant]
     Indication: HYPERTENSION
  8. GLYBURIDE [Concomitant]
     Indication: DIABETES MELLITUS
  9. ASPIRIN [Concomitant]
     Indication: ISCHAEMIC HEART DISEASE PROPHYLAXIS
  10. PRILOSEC [Concomitant]
     Indication: DYSPEPSIA
  11. DETROL LA [Concomitant]
     Indication: POLLAKIURIA
  12. METFORMIN [Concomitant]
  13. LIPITOR [Concomitant]
     Indication: BLOOD CHOLESTEROL INCREASED
  14. TIMOLOL [Concomitant]
     Indication: GLAUCOMA

REACTIONS (1)
  - DYSPNOEA [None]
